FAERS Safety Report 8519353 (Version 2)
Quarter: 2014Q1

REPORT INFORMATION
  Report Type: Report from Study
  Country: US (occurrence: US)
  Receive Date: 20120418
  Receipt Date: 20140325
  Transmission Date: 20141002
  Serious: Yes (Hospitalization)
  Sender: FDA-Public Use
  Company Number: US-UCBSA-055197

PATIENT
  Age: 51 Year
  Sex: Female
  Weight: 97 kg

DRUGS (12)
  1. CIMZIA [Suspect]
     Indication: CROHN^S DISEASE
     Route: 058
     Dates: start: 20100308
  2. ZYRTEC [Concomitant]
     Indication: SEASONAL ALLERGY
     Route: 048
     Dates: start: 201203
  3. CLARITIN D [Concomitant]
     Indication: SEASONAL ALLERGY
     Dosage: 5-120 MG DAILY PRN
     Dates: start: 201003
  4. VITAMIN B12 [Concomitant]
     Indication: VITAMIN SUPPLEMENTATION
     Route: 030
     Dates: start: 2007
  5. ESTRADIOL [Concomitant]
     Indication: OESTROGEN REPLACEMENT THERAPY
     Dosage: 1.5 MG DAILY
     Dates: start: 2003
  6. LORAZEPAM [Concomitant]
     Indication: ANXIETY
     Dosage: 0.5 MG PRN
     Dates: start: 2005
  7. RANITIDINE [Concomitant]
     Indication: GASTROOESOPHAGEAL REFLUX DISEASE
     Dates: start: 2004
  8. PAROXETINE [Concomitant]
     Indication: DEPRESSION
     Dosage: 40 MG DAILY
     Dates: start: 2005
  9. VENTOLIN [Concomitant]
     Indication: UPPER RESPIRATORY TRACT INFECTION
     Dosage: 90 MCG/ACT 2 PUFFS, QID PRN
     Dates: start: 2004
  10. ZOLPIDEM [Concomitant]
     Indication: INSOMNIA
     Dosage: 10 MG AT BEDTIME
     Dates: start: 2005
  11. NAPROXEN [Concomitant]
  12. DIFLUCAN [Concomitant]
     Indication: ORAL CANDIDIASIS
     Dosage: 100MG DAILY PRN FOR 10 DAYS
     Route: 048

REACTIONS (1)
  - Subcutaneous abscess [Recovered/Resolved]
